FAERS Safety Report 13836071 (Version 1)
Quarter: 2017Q3

REPORT INFORMATION
  Report Type: Spontaneous
  Country: US (occurrence: US)
  Receive Date: 20170804
  Receipt Date: 20170804
  Transmission Date: 20171127
  Serious: No
  Sender: FDA-Public Use
  Company Number: US-PERRIGO-17US001898

PATIENT
  Sex: Female

DRUGS (2)
  1. MOTRIN IB [Suspect]
     Active Substance: IBUPROFEN
     Indication: PRODUCT USED FOR UNKNOWN INDICATION
     Dosage: UNK
     Route: 048
     Dates: start: 201702
  2. ANTIBIOTICS [Suspect]
     Active Substance: UNSPECIFIED INGREDIENT
     Indication: STREPTOCOCCAL INFECTION
     Dosage: UNK
     Route: 048

REACTIONS (1)
  - Vomiting [Unknown]

NARRATIVE: CASE EVENT DATE: 201702
